FAERS Safety Report 6884646-7 (Version None)
Quarter: 2010Q3

REPORT INFORMATION
  Report Type: 
  Country: None (occurrence: None)
  Receive Date: 20100729
  Receipt Date: 20070718
  Transmission Date: 20110219
  Serious: No
  Sender: FDA-Public Use
  Company Number: US-PFIZER INC-2007059554

PATIENT
  Sex: Male

DRUGS (3)
  1. CELEBREX [Suspect]
     Indication: PAIN IN EXTREMITY
     Dates: start: 20070717
  2. CELEBREX [Suspect]
     Indication: ARTHRALGIA
  3. VITAMINS [Concomitant]

REACTIONS (1)
  - ANXIETY [None]
